FAERS Safety Report 14903007 (Version 1)
Quarter: 2018Q2

REPORT INFORMATION
  Report Type: Spontaneous
  Country: US (occurrence: US)
  Receive Date: 20180516
  Receipt Date: 20180516
  Transmission Date: 20180711
  Serious: No
  Sender: FDA-Public Use
  Company Number: US-SA-2017SA116833

PATIENT
  Age: 51 Year
  Sex: Female

DRUGS (5)
  1. SOLOSTAR [Concomitant]
     Active Substance: DEVICE
     Indication: GLYCOSYLATED HAEMOGLOBIN INCREASED
     Dates: start: 201409
  2. LANTUS SOLOSTAR [Suspect]
     Active Substance: INSULIN GLARGINE
     Indication: GLYCOSYLATED HAEMOGLOBIN INCREASED
     Dosage: DOSE:40 UNIT(S)
     Route: 058
     Dates: start: 201704
  3. LANTUS SOLOSTAR [Suspect]
     Active Substance: INSULIN GLARGINE
     Indication: GLYCOSYLATED HAEMOGLOBIN INCREASED
     Dosage: 15 UNITS WITH A VARIANCE UP TO 45 UNITS DAILY
     Route: 058
     Dates: start: 201409
  4. SOLOSTAR [Concomitant]
     Active Substance: DEVICE
     Indication: GLYCOSYLATED HAEMOGLOBIN INCREASED
     Dates: start: 201704
  5. METFORMIN [Concomitant]
     Active Substance: METFORMIN HYDROCHLORIDE

REACTIONS (1)
  - Pain [Unknown]
